FAERS Safety Report 7515316-X (Version None)
Quarter: 2011Q2

REPORT INFORMATION
  Report Type: 
  Country: None (occurrence: None)
  Receive Date: 20110425
  Receipt Date: 20100217
  Transmission Date: 20111010
  Serious: Yes (Other)
  Sender: FDA-Public Use
  Company Number: MC201000041

PATIENT
  Age: 79 Year

DRUGS (3)
  1. ANGIOMAX [Suspect]
     Indication: PERCUTANEOUS CORONARY INTERVENTION
     Dosage: 0.75 MG/KG, BOLUS, INTRAVENOUS, 1.75 MG/KG, HR, INTRAVENOUS, BOLUS, INTRAVENOUS
     Route: 042
     Dates: start: 20100202, end: 20100202
  2. ANGIOMAX [Suspect]
     Indication: PERCUTANEOUS CORONARY INTERVENTION
     Dosage: 0.75 MG/KG, BOLUS, INTRAVENOUS, 1.75 MG/KG, HR, INTRAVENOUS, BOLUS, INTRAVENOUS
     Route: 042
     Dates: start: 20100202, end: 20100202
  3. ANGIOMAX [Suspect]
     Indication: PERCUTANEOUS CORONARY INTERVENTION
     Dosage: 0.75 MG/KG, BOLUS, INTRAVENOUS, 1.75 MG/KG, HR, INTRAVENOUS, BOLUS, INTRAVENOUS
     Route: 042
     Dates: start: 20100202, end: 20100202

REACTIONS (2)
  - CORONARY ARTERY THROMBOSIS [None]
  - COAGULATION TIME ABNORMAL [None]
